FAERS Safety Report 21490346 (Version 1)
Quarter: 2022Q4

REPORT INFORMATION
  Report Type: Report from Study
  Country: PL (occurrence: PL)
  Receive Date: 20221021
  Receipt Date: 20221021
  Transmission Date: 20230113
  Serious: Yes (Other)
  Sender: FDA-Public Use
  Company Number: PL-VELOXIS PHARMACEUTICALS, INC.-2022-VEL-00611

PATIENT
  Sex: Male
  Weight: 86 kg

DRUGS (12)
  1. ENVARSUS XR [Suspect]
     Active Substance: TACROLIMUS
     Indication: Immunosuppressant drug therapy
     Dosage: 8 MILLIGRAM
     Route: 048
     Dates: start: 20211006
  2. ENVARSUS XR [Suspect]
     Active Substance: TACROLIMUS
     Dosage: 8 MILLIGRAM
     Route: 048
     Dates: start: 20211027
  3. ENVARSUS XR [Suspect]
     Active Substance: TACROLIMUS
     Dosage: 7 MILLIGRAM
     Dates: start: 20211228
  4. ENVARSUS XR [Suspect]
     Active Substance: TACROLIMUS
     Dosage: 3.5 MILLIGRAM
     Dates: start: 20220328
  5. MYCOPHENOLATE MOFETIL [Suspect]
     Active Substance: MYCOPHENOLATE MOFETIL
     Indication: Immunosuppressant drug therapy
     Dosage: 1 GRAM, BID
     Dates: start: 20211006
  6. MYCOPHENOLATE MOFETIL [Suspect]
     Active Substance: MYCOPHENOLATE MOFETIL
     Dosage: 750 MILLIGRAM, BID
     Dates: start: 20211027
  7. METHYLPREDNISOLONE [Suspect]
     Active Substance: METHYLPREDNISOLONE
     Indication: Immunosuppressant drug therapy
     Dosage: 1375 MILLIGRAM
     Route: 042
     Dates: start: 20211006
  8. METHYLPREDNISOLONE [Suspect]
     Active Substance: METHYLPREDNISOLONE
     Indication: Immunosuppression
     Dosage: 20 MILLIGRAM
     Route: 048
     Dates: start: 20211006
  9. METHYLPREDNISOLONE [Suspect]
     Active Substance: METHYLPREDNISOLONE
     Dosage: 16 MILLIGRAM
     Route: 048
     Dates: start: 20211027
  10. METHYLPREDNISOLONE [Suspect]
     Active Substance: METHYLPREDNISOLONE
     Dosage: 12 MILLIGRAM
     Route: 048
     Dates: start: 20211228
  11. METHYLPREDNISOLONE [Suspect]
     Active Substance: METHYLPREDNISOLONE
     Dosage: 10 MILLIGRAM
     Route: 048
     Dates: start: 20220328
  12. LAPINE T-LYMPHOCYTE IMMUNE GLOBULIN [Suspect]
     Active Substance: LAPINE T-LYMPHOCYTE IMMUNE GLOBULIN
     Indication: Immunosuppressant drug therapy
     Dosage: UNK
     Dates: start: 20221006

REACTIONS (1)
  - Transplant rejection [Unknown]
